FAERS Safety Report 5911192-7 (Version None)
Quarter: 2008Q4

REPORT INFORMATION
  Report Type: 
  Country: None (occurrence: None)
  Receive Date: 20081007
  Receipt Date: 20080616
  Transmission Date: 20090506
  Serious: No
  Sender: FDA-Public Use
  Company Number: US-BRISTOL-MYERS SQUIBB COMPANY-14229470

PATIENT
  Age: 70 Year
  Sex: Female
  Weight: 66 kg

DRUGS (2)
  1. AVAPRO [Suspect]
     Indication: HYPERTENSION
     Dosage: 6 YEARS AGO STARTED 150MG BID.
  2. ATENOLOL [Concomitant]

REACTIONS (2)
  - ABDOMINAL PAIN [None]
  - GASTROOESOPHAGEAL REFLUX DISEASE [None]
